FAERS Safety Report 9691948 (Version 1)
Quarter: 2013Q4

REPORT INFORMATION
  Report Type: Spontaneous
  Country: US (occurrence: US)
  Receive Date: 20131118
  Receipt Date: 20131118
  Transmission Date: 20140711
  Serious: Yes (Hospitalization, Other)
  Sender: FDA-Public Use
  Company Number: US-JNJFOC-20131102942

PATIENT
  Sex: Female
  Weight: 79.83 kg

DRUGS (4)
  1. NEOSPORIN PLUS PAIN RELIEF MAXIMUM STRENGTH FIRST AID ANTIBIOTIC PAIN RELIEVING [Suspect]
     Indication: INFECTION
     Dosage: 1/8 OF A TEASPOON 45MIN TO 2HR
     Route: 061
  2. CEPHALEXIN [Concomitant]
     Indication: INFECTION
     Route: 065
     Dates: start: 20131104
  3. CEPHALEXIN [Concomitant]
     Indication: INFECTION
     Route: 065
     Dates: start: 20131025
  4. SULFAMETHOXAZOLE/TRIMETHOPRIM [Concomitant]
     Indication: INFECTION
     Route: 065

REACTIONS (2)
  - Infection [Not Recovered/Not Resolved]
  - Drug ineffective [Unknown]
